FAERS Safety Report 18338518 (Version 1)
Quarter: 2020Q4

REPORT INFORMATION
  Report Type: Spontaneous
  Country: US (occurrence: US)
  Receive Date: 20201002
  Receipt Date: 20201002
  Transmission Date: 20210113
  Serious: Yes (Other)
  Sender: FDA-Public Use
  Company Number: US-HIKMA PHARMACEUTICALS USA INC.-US-H14001-20-04452

PATIENT
  Age: 45 Year
  Sex: Male

DRUGS (1)
  1. CEFTRIAXONE. [Suspect]
     Active Substance: CEFTRIAXONE
     Indication: NOCARDIOSIS
     Dosage: UNKNOWN
     Route: 042

REACTIONS (3)
  - Neck mass [Recovered/Resolved]
  - Central nervous system lesion [Recovered/Resolved]
  - Treatment noncompliance [Recovered/Resolved]
